FAERS Safety Report 24969149 (Version 1)
Quarter: 2025Q1

REPORT INFORMATION
  Report Type: Spontaneous
  Country: US (occurrence: US)
  Receive Date: 20250214
  Receipt Date: 20250214
  Transmission Date: 20250409
  Serious: No
  Sender: AMNEAL
  Company Number: US-AMNEAL PHARMACEUTICALS-2024-AMRX-00803

PATIENT
  Age: 87 Year
  Sex: Male

DRUGS (3)
  1. RYTARY [Suspect]
     Active Substance: CARBIDOPA\LEVODOPA
     Indication: Parkinson^s disease
     Dosage: THREE 48.75/195 PILLS 4X/DAY
     Route: 065
  2. RYTARY [Suspect]
     Active Substance: CARBIDOPA\LEVODOPA
     Dosage: 48.75/195 PILLS 3X/DAY
     Route: 065
  3. SINEMET [Suspect]
     Active Substance: CARBIDOPA\LEVODOPA
     Indication: Product used for unknown indication
     Dosage: 25/100 3X PER DAY
     Route: 065

REACTIONS (13)
  - Aggression [Unknown]
  - Anger [Unknown]
  - Abnormal behaviour [Unknown]
  - Paranoia [Unknown]
  - Fall [Unknown]
  - Pain [Unknown]
  - Drooling [Unknown]
  - Mental disorder [Unknown]
  - Therapeutic response shortened [Unknown]
  - Psychotic disorder [Unknown]
  - Confusional state [Unknown]
  - Delusion [Unknown]
  - Product substitution issue [Unknown]
